FAERS Safety Report 6472470-9 (Version None)
Quarter: 2009Q4

REPORT INFORMATION
  Report Type: 
  Country: None (occurrence: None)
  Receive Date: 20091130
  Receipt Date: 20091110
  Transmission Date: 20100525
  Serious: Yes (Death, Life-Threatening)
  Sender: FDA-Public Use
  Company Number: 2009JP004779

PATIENT
  Age: 62 Year
  Sex: Female
  Weight: 37 kg

DRUGS (20)
  1. GRACEPTOR (TACROLIMUS) CAPSULE [Suspect]
     Indication: LIVER TRANSPLANT
     Dosage: 0.5 MG, UID/QD, ORAL
     Route: 048
     Dates: start: 20090729, end: 20090816
  2. PROGRAF   (TACROLIMUS) FOMILATION UNKNOWN [Suspect]
     Indication: LIVER TRANSPLANT
     Dates: end: 20090717
  3. PREDNISOLONE [Concomitant]
  4. PREDNISOLONE [Concomitant]
  5. LASIX    (FUROSEMIDE) INJECTION [Concomitant]
  6. FUNGUARD (MICAFUNGIN) [Concomitant]
  7. KAYTWO (MENATETRENONE) INJECTION [Concomitant]
  8. DALACIN-S (CLINDAMYCIN) INJECTION [Concomitant]
  9. GLOVENIN (IMMUNOGLOBULIN HUMAN NORMAL) INJECTION [Concomitant]
  10. TIENAM (IMPENEM, CILASTATIN SODIUM) INJECTION [Concomitant]
  11. VALTREX [Concomitant]
  12. FAMOTIDINE (FAMOTIDINE) TABLET [Concomitant]
  13. BARACLUDE (ENTECAVIR) TABLET [Concomitant]
  14. DAIJENTYUTO (HERBAL EXTRACT NOS) GRANULE [Concomitant]
  15. URSO (URSODEOXYCHOLIC ACID, RIBOFLAVIN) GRANULE [Concomitant]
  16. UNASYN (SULTAMICILLIN) FORMULATION [Concomitant]
  17. CIPROXAN (CIPROFLOXACIN HYDROCHLORIDE) FORMULATION [Concomitant]
  18. ANTIBIOTICS FORMULATION [Concomitant]
  19. GAMMA GLOBULIN (IMMUNOGLOBIN) FORMULATION [Concomitant]
  20. CELLCEPT [Suspect]
     Indication: LIVER TRANSPLANT
     Dosage: 500 MG, UNKNOWN/D, ORAL
     Route: 048
     Dates: start: 20090718, end: 20090801

REACTIONS (14)
  - ACIDOSIS [None]
  - ALANINE AMINOTRANSFERASE INCREASED [None]
  - BACTERIAL INFECTION [None]
  - BLOOD CULTURE POSITIVE [None]
  - BLOOD PRESSURE DECREASED [None]
  - CYTOMEGALOVIRUS VIRAEMIA [None]
  - GENERAL PHYSICAL HEALTH DETERIORATION [None]
  - HEPATIC FUNCTION ABNORMAL [None]
  - OLIGURIA [None]
  - PLATELET COUNT DECREASED [None]
  - PROTHROMBIN LEVEL DECREASED [None]
  - PYREXIA [None]
  - RENAL IMPAIRMENT [None]
  - SEPSIS [None]
